FAERS Safety Report 7123579-8 (Version None)
Quarter: 2010Q4

REPORT INFORMATION
  Report Type: 
  Country: None (occurrence: None)
  Receive Date: 20101125
  Receipt Date: 20101117
  Transmission Date: 20110411
  Serious: Yes (Other)
  Sender: FDA-Public Use
  Company Number: FR-NOVOPROD-318760

PATIENT
  Age: 57 Year
  Sex: Female

DRUGS (8)
  1. VICTOZA [Suspect]
     Indication: TYPE 2 DIABETES MELLITUS
     Dosage: UNK
     Dates: start: 20100801
  2. DIAMICRON [Concomitant]
  3. GLUCOPHAGE [Concomitant]
  4. COAPROVEL [Concomitant]
  5. TAHOR [Concomitant]
  6. STILNOX [Concomitant]
  7. LEXOMIL [Concomitant]
  8. VITAMIN B12                        /00056201/ [Concomitant]
     Dosage: UNK
     Dates: start: 20100801

REACTIONS (1)
  - RENAL FAILURE [None]
